FAERS Safety Report 8815336 (Version 1)
Quarter: 2012Q4

REPORT INFORMATION
  Report Type: 
  Country: US (occurrence: US)
  Receive Date: 20120928
  Receipt Date: 20120928
  Transmission Date: 20130627
  Serious: No
  Sender: FDA-Public Use
  Company Number: US-ASTRAZENECA-2012SE72232

PATIENT
  Sex: Female

DRUGS (5)
  1. SYMBICORT PMDI [Suspect]
     Indication: ASTHMA
     Dosage: 160/4.5 MCG ONE PUFF TWO TIMES A DAY
     Route: 055
  2. SYMBICORT PMDI [Suspect]
     Indication: ASTHMA
     Dosage: 160/4.5 MCG TWO PUFFS TWO TIMES A DAY
     Route: 055
  3. SYMBICORT PMDI [Suspect]
     Indication: ASTHMA
     Dosage: 160/4.5 MCG TWO PUFFS TWO TIMES A DAY
     Route: 055
  4. XOPENEX [Concomitant]
     Indication: ASTHMA
     Dosage: PRN
     Route: 055
  5. ZYRTEC [Concomitant]
     Indication: MULTIPLE ALLERGIES
     Dosage: DAILY
     Route: 048

REACTIONS (3)
  - Dyspnoea [Unknown]
  - Off label use [Unknown]
  - Circumstance or information capable of leading to medication error [Unknown]
